FAERS Safety Report 15897767 (Version 2)
Quarter: 2019Q1

REPORT INFORMATION
  Report Type: Report from Study
  Country: ES (occurrence: ES)
  Receive Date: 20190201
  Receipt Date: 20190215
  Transmission Date: 20190417
  Serious: Yes (Death, Hospitalization, Other)
  Sender: FDA-Public Use
  Company Number: ES-BRISTOL-MYERS SQUIBB COMPANY-BMS-2019-006416

PATIENT
  Age: 75 Year
  Sex: Male

DRUGS (2)
  1. PLATINUM [Suspect]
     Active Substance: PLATINUM
     Indication: LUNG CANCER METASTATIC
     Dosage: UNK
     Route: 065
     Dates: start: 20180219
  2. NIVOLUMAB [Suspect]
     Active Substance: NIVOLUMAB
     Indication: LUNG CANCER METASTATIC
     Dosage: UNK
     Route: 065

REACTIONS (7)
  - Decreased appetite [Fatal]
  - Renal failure [Unknown]
  - Liver function test increased [Fatal]
  - Hyperbilirubinaemia [Fatal]
  - Asthenia [Fatal]
  - Immune-mediated hepatitis [Fatal]
  - Hyperglycaemia [Fatal]
